FAERS Safety Report 16390325 (Version 8)
Quarter: 2020Q2

REPORT INFORMATION
  Report Type: Spontaneous
  Country: BR (occurrence: BR)
  Receive Date: 20190604
  Receipt Date: 20200515
  Transmission Date: 20200713
  Serious: Yes (Hospitalization, Other)
  Sender: FDA-Public Use
  Company Number: BR-GLAXOSMITHKLINE-BR2019GSK100017

PATIENT
  Sex: Male
  Weight: 100 kg

DRUGS (1)
  1. NUCALA [Suspect]
     Active Substance: MEPOLIZUMAB
     Indication: ASTHMA
     Dosage: 100 MG, UNK
     Dates: start: 20190524

REACTIONS (16)
  - Erysipelas [Unknown]
  - Tendon rupture [Unknown]
  - Mobility decreased [Unknown]
  - Fall [Unknown]
  - Computerised tomogram abnormal [Unknown]
  - Carotid arteriosclerosis [Unknown]
  - Deep vein thrombosis [Unknown]
  - Diabetes mellitus inadequate control [Unknown]
  - Balance disorder [Not Recovered/Not Resolved]
  - Cerebral ventricle dilatation [Unknown]
  - Pruritus [Unknown]
  - Scratch [Unknown]
  - Muscular weakness [Unknown]
  - Cerebral arteriosclerosis [Unknown]
  - Product availability issue [Unknown]
  - Product dose omission [Unknown]
